FAERS Safety Report 11009330 (Version 1)
Quarter: 2015Q2

REPORT INFORMATION
  Report Type: Spontaneous
  Country: US (occurrence: US)
  Receive Date: 20150410
  Receipt Date: 20150410
  Transmission Date: 20150821
  Serious: No
  Sender: FDA-Public Use
  Company Number: US-BAUSCH-SYM-2014-21194

PATIENT
  Age: 53 Year
  Sex: Female
  Weight: 58.11 kg

DRUGS (3)
  1. VOLTAREN [Suspect]
     Active Substance: DICLOFENAC SODIUM
     Indication: PRODUCT USED FOR UNKNOWN INDICATION
  2. ZYCLARA [Suspect]
     Active Substance: IMIQUIMOD
     Dosage: ONCE DAILY
     Route: 048
  3. ZYCLARA [Suspect]
     Active Substance: IMIQUIMOD
     Indication: ACTINIC KERATOSIS
     Dosage: TWICE A WEEK FOR 6 MONTHS
     Route: 048

REACTIONS (1)
  - Mouth ulceration [Unknown]
